FAERS Safety Report 7742412-4 (Version None)
Quarter: 2011Q3

REPORT INFORMATION
  Report Type: 
  Country: None (occurrence: None)
  Receive Date: 20110901
  Receipt Date: 20110826
  Transmission Date: 20111222
  Serious: Yes (Hospitalization)
  Sender: FDA-Public Use
  Company Number: 2011SP031380

PATIENT
  Age: 20 Year
  Sex: Male

DRUGS (3)
  1. LORAZEPAM [Concomitant]
  2. REMERON [Suspect]
     Indication: DEPRESSION
     Dosage: 15 MG;QD;PO ; QD;PO
     Route: 048
     Dates: start: 20110208, end: 20110219
  3. REMERON [Suspect]
     Indication: DEPRESSION
     Dosage: 15 MG;QD;PO ; QD;PO
     Route: 048
     Dates: start: 20110220, end: 20110220

REACTIONS (4)
  - SUICIDAL IDEATION [None]
  - OVERDOSE [None]
  - SELF INJURIOUS BEHAVIOUR [None]
  - IMPULSIVE BEHAVIOUR [None]
